FAERS Safety Report 11836222 (Version 1)
Quarter: 2015Q4

REPORT INFORMATION
  Report Type: Spontaneous
  Country: US (occurrence: US)
  Receive Date: 20151215
  Receipt Date: 20151215
  Transmission Date: 20160305
  Serious: No
  Sender: FDA-Public Use
  Company Number: US-SHIRE-US-002028

PATIENT
  Age: 53 Year
  Sex: Female

DRUGS (4)
  1. ZOFRAN [Concomitant]
     Active Substance: ONDANSETRON HYDROCHLORIDE
     Indication: NAUSEA
     Dosage: UNK
     Route: 065
  2. GATTEX [Suspect]
     Active Substance: TEDUGLUTIDE\WATER
     Dosage: PATIENT USING ONLY HELP PRESCRIBED DOSE OF GATTEX
     Route: 058
     Dates: start: 20150522, end: 201505
  3. LIPIDS NOS W/PROTEINS NOS/VITAMINS NOS [Concomitant]
     Indication: PARENTERAL NUTRITION
     Dosage: UNK
     Route: 042
  4. GATTEX [Suspect]
     Active Substance: TEDUGLUTIDE\WATER
     Indication: SHORT-BOWEL SYNDROME
     Dosage: UNK
     Route: 058
     Dates: start: 20150522

REACTIONS (5)
  - Fatigue [Unknown]
  - Nausea [Unknown]
  - Drug dose omission [Unknown]
  - Vomiting [Unknown]
  - Incorrect dose administered [Unknown]

NARRATIVE: CASE EVENT DATE: 20150729
